FAERS Safety Report 8101132-7 (Version None)
Quarter: 2012Q1

REPORT INFORMATION
  Report Type: 
  Country: None (occurrence: None)
  Receive Date: 20120129
  Receipt Date: 20110916
  Transmission Date: 20120608
  Serious: Yes (Other)
  Sender: FDA-Public Use
  Company Number: US-ABBOTT-11P-163-0856112-00

PATIENT
  Sex: Female

DRUGS (2)
  1. HUMIRA [Suspect]
     Indication: RHEUMATOID ARTHRITIS
     Route: 058
     Dates: start: 20110624
  2. HUMIRA [Suspect]

REACTIONS (3)
  - IMPAIRED HEALING [None]
  - INCISIONAL DRAINAGE [None]
  - GALLBLADDER OPERATION [None]
